FAERS Safety Report 9431293 (Version 1)
Quarter: 2013Q3

REPORT INFORMATION
  Report Type: Spontaneous
  Country: US (occurrence: US)
  Receive Date: 20130730
  Receipt Date: 20130730
  Transmission Date: 20140515
  Serious: No
  Sender: FDA-Public Use
  Company Number: US-009507513-1307USA005829

PATIENT
  Sex: Female
  Weight: 63.49 kg

DRUGS (3)
  1. MIRALAX [Suspect]
     Indication: CONSTIPATION
     Dosage: UNK, QD
     Route: 048
     Dates: start: 2003
  2. MIRALAX [Suspect]
     Indication: MEDICAL OBSERVATION
  3. MIRALAX [Suspect]
     Indication: ABDOMINAL ADHESIONS

REACTIONS (3)
  - Diarrhoea [Recovered/Resolved]
  - Therapeutic response unexpected [Unknown]
  - Incorrect drug administration duration [Unknown]
